FAERS Safety Report 9893729 (Version 1)
Quarter: 2014Q1

REPORT INFORMATION
  Report Type: Spontaneous
  Country: FR (occurrence: FR)
  Receive Date: 20140213
  Receipt Date: 20140213
  Transmission Date: 20141002
  Serious: Yes (Hospitalization, Other)
  Sender: FDA-Public Use
  Company Number: FR-PFIZER INC-2014040502

PATIENT
  Age: 66 Year
  Sex: Male

DRUGS (9)
  1. AMIODARONE HCL [Suspect]
     Dosage: UNK
     Route: 048
  2. PRAVASTATIN SODIUM [Interacting]
     Indication: DYSLIPIDAEMIA
     Dosage: UNK
     Route: 048
     Dates: end: 20131129
  3. KARDEGIC [Interacting]
     Dosage: UNK
     Route: 048
     Dates: end: 20131129
  4. SINTROM [Interacting]
     Indication: ATRIAL FIBRILLATION
     Dosage: UNK
     Route: 048
     Dates: end: 20131129
  5. CARDENSIEL [Concomitant]
     Dosage: UNK
  6. PROCORALAN [Concomitant]
     Dosage: UNK
  7. FUROSEMIDE [Concomitant]
     Dosage: UNK
  8. LEVOTHYROX [Concomitant]
     Dosage: UNK
  9. INSULATARD [Concomitant]
     Dosage: UNK
     Dates: end: 20131129

REACTIONS (5)
  - Drug interaction [Unknown]
  - International normalised ratio increased [Recovered/Resolved]
  - Conjunctival haemorrhage [Recovered/Resolved]
  - Cardiac failure [Unknown]
  - Pneumonia [Unknown]
